FAERS Safety Report 5205784-0 (Version None)
Quarter: 2007Q1

REPORT INFORMATION
  Report Type: 
  Country: None (occurrence: None)
  Receive Date: 20070111
  Receipt Date: 20070104
  Transmission Date: 20070707
  Serious: Yes (Death)
  Sender: FDA-Public Use
  Company Number: LV-ROCHE-477045

PATIENT
  Age: 49 Year
  Sex: Male
  Weight: 70 kg

DRUGS (5)
  1. INVIRASE [Suspect]
     Dosage: DOSAGE REGIMEN REPORTED: X2.
     Route: 048
     Dates: start: 20060307, end: 20061228
  2. RITONAVIR [Suspect]
     Dosage: DOSAGE REGIMEN REPORTED: X2. DRUG REPORTED AS RITANOVIR.
     Route: 048
     Dates: start: 20060307, end: 20061228
  3. COMBIVIR [Suspect]
     Dosage: REPORTED AS: AZIDOTIMIDINE/ LAMIVUDINE. STRENGTH: 150 MG/ 300 MG. DOSAGE REGIMEN REPORTED: X2.
     Route: 048
     Dates: start: 20060307, end: 20061228
  4. FLUCONAZOLE [Suspect]
     Indication: CANDIDIASIS
     Dosage: DOSAGE REGIMEN REPORTED: X1. INDICATION REPORTED AS CANIDIASIS.
     Route: 048
     Dates: start: 20060307, end: 20060328
  5. VINBLASTINE SULFATE [Concomitant]
     Indication: NON-HODGKIN'S LYMPHOMA
     Dosage: DOSAGE REGIMEN REPORTED: SCHEMA.
     Dates: start: 20060126, end: 20061228

REACTIONS (1)
  - NON-HODGKIN'S LYMPHOMA [None]
